FAERS Safety Report 14551807 (Version 1)
Quarter: 2018Q1

REPORT INFORMATION
  Report Type: Spontaneous
  Country: US (occurrence: US)
  Receive Date: 20180220
  Receipt Date: 20180220
  Transmission Date: 20180509
  Serious: Yes (Hospitalization)
  Sender: FDA-Public Use
  Company Number: US-ROCHE-2071473

PATIENT
  Age: 57 Year
  Sex: Male
  Weight: 113.5 kg

DRUGS (1)
  1. TAMIFLU [Suspect]
     Active Substance: OSELTAMIVIR PHOSPHATE
     Indication: INFLUENZA
     Dosage: ONE TABLET TWICE DAILY EVERY 12 HOURS FOR 5 DAYS
     Route: 048
     Dates: start: 20180125, end: 20180130

REACTIONS (9)
  - Confusional state [Recovered/Resolved]
  - Asthenia [Not Recovered/Not Resolved]
  - Dehydration [Unknown]
  - Fatigue [Not Recovered/Not Resolved]
  - Ill-defined disorder [Not Recovered/Not Resolved]
  - Hypertension [Unknown]
  - Toxicity to various agents [Unknown]
  - Blood creatinine abnormal [Unknown]
  - Restlessness [Unknown]

NARRATIVE: CASE EVENT DATE: 20180201
